FAERS Safety Report 17758229 (Version 3)
Quarter: 2020Q3

REPORT INFORMATION
  Report Type: Spontaneous
  Country: US (occurrence: US)
  Receive Date: 20200507
  Receipt Date: 20200928
  Transmission Date: 20201102
  Serious: Yes (Other)
  Sender: FDA-Public Use
  Company Number: US-GILEAD-2020-0464635

PATIENT
  Age: 62 Year
  Sex: Male

DRUGS (1)
  1. STRIBILD [Suspect]
     Active Substance: COBICISTAT\ELVITEGRAVIR\EMTRICITABINE\TENOFOVIR DISOPROXIL FUMARATE
     Indication: HIV INFECTION
     Dosage: UNK
     Route: 048
     Dates: start: 2014, end: 201801

REACTIONS (8)
  - Tooth loss [Not Recovered/Not Resolved]
  - Bone density decreased [Unknown]
  - Bone disorder [Unknown]
  - Chronic kidney disease [Unknown]
  - Renal failure [Unknown]
  - Osteonecrosis [Unknown]
  - Osteopenia [Not Recovered/Not Resolved]
  - Bone loss [Unknown]

NARRATIVE: CASE EVENT DATE: 201901
